FAERS Safety Report 7195820-7 (Version None)
Quarter: 2010Q4

REPORT INFORMATION
  Report Type: 
  Country: None (occurrence: None)
  Receive Date: 20101223
  Receipt Date: 20101211
  Transmission Date: 20110411
  Serious: Yes (Other)
  Sender: FDA-Public Use
  Company Number: US-PFIZER INC-2010043893

PATIENT
  Sex: Female
  Weight: 92.517 kg

DRUGS (4)
  1. CELEBREX [Suspect]
     Indication: ARTHRALGIA
     Dosage: 200 MG, 1X/DAY
     Dates: start: 20100201, end: 20100326
  2. ADVIL [Suspect]
     Indication: PRODUCT USED FOR UNKNOWN INDICATION
     Route: 048
     Dates: end: 20100101
  3. LISINOPRIL AND HYDROCHLOROTHIAZIDE [Suspect]
     Dosage: 20/25 MG DAILY
     Dates: start: 20100101, end: 20100402
  4. NEXIUM [Concomitant]
     Dosage: UNK
     Route: 048

REACTIONS (3)
  - ARTHRALGIA [None]
  - DRUG ABUSE [None]
  - RASH ERYTHEMATOUS [None]
